APPROVED DRUG PRODUCT: CLOBAZAM
Active Ingredient: CLOBAZAM
Strength: 2.5MG/ML
Dosage Form/Route: SUSPENSION;ORAL
Application: A210546 | Product #001
Applicant: LUPIN LTD
Approved: Dec 28, 2018 | RLD: No | RS: No | Type: DISCN